FAERS Safety Report 11696088 (Version 1)
Quarter: 2015Q4

REPORT INFORMATION
  Report Type: Spontaneous
  Country: US (occurrence: None)
  Receive Date: 20151103
  Receipt Date: 20151103
  Transmission Date: 20160304
  Serious: Yes (Other)
  Sender: FDA-Public Use
  Company Number: None

PATIENT
  Age: 56 Year
  Sex: Female
  Weight: 59.88 kg

DRUGS (8)
  1. FLUTICASONE PROPIONATE 0.05% CREAM [Suspect]
     Active Substance: FLUTICASONE PROPIONATE
     Indication: ROSACEA
     Dosage: APPLY THINK FILM, ONCE DAILY EVERY MORNING, ON THE SKIN
     Route: 061
     Dates: start: 20150601, end: 20150605
  2. FLUTICASONE PROPIONATE 0.05% CREAM [Suspect]
     Active Substance: FLUTICASONE PROPIONATE
     Indication: SKIN DISORDER
     Dosage: APPLY THINK FILM, ONCE DAILY EVERY MORNING, ON THE SKIN
     Route: 061
     Dates: start: 20150601, end: 20150605
  3. SYNTHROID [Concomitant]
     Active Substance: LEVOTHYROXINE SODIUM
  4. BAYER LOW DOSE ASPIRIN [Concomitant]
  5. CLINDAMYCIN PHOSPHATE. [Concomitant]
     Active Substance: CLINDAMYCIN PHOSPHATE
  6. FLUTICASONE PROPIONATE 0.05% CREAM [Suspect]
     Active Substance: FLUTICASONE PROPIONATE
     Indication: SEBORRHOEIC DERMATITIS
     Dosage: APPLY THINK FILM, ONCE DAILY EVERY MORNING, ON THE SKIN
     Route: 061
     Dates: start: 20150601, end: 20150605
  7. FLUTICASONE PROPIONATE 0.05% CREAM [Suspect]
     Active Substance: FLUTICASONE PROPIONATE
     Indication: DERMATITIS CONTACT
     Dosage: APPLY THINK FILM, ONCE DAILY EVERY MORNING, ON THE SKIN
     Route: 061
     Dates: start: 20150601, end: 20150605
  8. FLUTICASONE PROPIONATE 0.05% CREAM [Suspect]
     Active Substance: FLUTICASONE PROPIONATE
     Indication: ACNE
     Dosage: APPLY THINK FILM, ONCE DAILY EVERY MORNING, ON THE SKIN
     Route: 061
     Dates: start: 20150601, end: 20150605

REACTIONS (6)
  - Burning sensation [None]
  - Skin disorder [None]
  - Application site discolouration [None]
  - Application site pain [None]
  - Application site irritation [None]
  - Application site erosion [None]

NARRATIVE: CASE EVENT DATE: 20150606
